FAERS Safety Report 23703515 (Version 1)
Quarter: 2024Q2

REPORT INFORMATION
  Report Type: Spontaneous
  Country: US (occurrence: US)
  Receive Date: 20240403
  Receipt Date: 20240403
  Transmission Date: 20240716
  Serious: No
  Sender: FDA-Public Use
  Company Number: US-Eisai-EC-2024-158569

PATIENT
  Age: 73 Year
  Sex: Male

DRUGS (9)
  1. LEQEMBI [Suspect]
     Active Substance: LECANEMAB-IRMB
     Indication: Dementia Alzheimer^s type
     Dosage: DOSE UNKNOWN
     Route: 042
     Dates: start: 20240124
  2. DONEPEZIL [Concomitant]
     Active Substance: DONEPEZIL
  3. TRILEPTAL [Concomitant]
     Active Substance: OXCARBAZEPINE
  4. PRIMIDONE [Concomitant]
     Active Substance: PRIMIDONE
  5. ASPIRIN [Concomitant]
     Active Substance: ASPIRIN
  6. LOSARTAN [Concomitant]
     Active Substance: LOSARTAN
  7. CYMBALTA [Concomitant]
     Active Substance: DULOXETINE HYDROCHLORIDE
  8. ZETIA [Concomitant]
     Active Substance: EZETIMIBE
  9. AMLODIPINE [Concomitant]
     Active Substance: AMLODIPINE BESYLATE

REACTIONS (3)
  - Headache [Recovered/Resolved]
  - Balance disorder [Recovered/Resolved]
  - Diarrhoea [Recovered/Resolved]

NARRATIVE: CASE EVENT DATE: 20240124
